FAERS Safety Report 10199538 (Version 1)
Quarter: 2014Q2

REPORT INFORMATION
  Report Type: Spontaneous
  Country: FR (occurrence: FR)
  Receive Date: 20140527
  Receipt Date: 20140527
  Transmission Date: 20141212
  Serious: Yes (Hospitalization)
  Sender: FDA-Public Use
  Company Number: FR-DSJP-DSE-2014-109029

PATIENT
  Sex: 0

DRUGS (3)
  1. OLMETEC 20 MG [Suspect]
     Indication: HYPERTENSION
     Dosage: 20 MG, QD
     Route: 048
     Dates: start: 20100114, end: 2014
  2. OLMETEC 20 MG [Suspect]
     Dosage: 20 MG, QD
     Route: 048
     Dates: start: 20140310, end: 2014
  3. DIAMICRON [Concomitant]
     Indication: DIABETES MELLITUS

REACTIONS (5)
  - Hypoglycaemia [Recovered/Resolved]
  - Colitis [Unknown]
  - Diarrhoea [Recovered/Resolved]
  - Weight decreased [Recovered/Resolved]
  - Dehydration [Recovered/Resolved]
